FAERS Safety Report 12587305 (Version 1)
Quarter: 2016Q3

REPORT INFORMATION
  Report Type: Spontaneous
  Country: DK (occurrence: DK)
  Receive Date: 20160725
  Receipt Date: 20160725
  Transmission Date: 20161109
  Serious: Yes (Life-Threatening)
  Sender: FDA-Public Use
  Company Number: DK-TEVA-677358ACC

PATIENT
  Age: 65 Year
  Sex: Male
  Weight: 83 kg

DRUGS (5)
  1. DULOXETINE ^TEVA^ [Suspect]
     Active Substance: DULOXETINE
     Indication: ANXIETY
     Dosage: 30 MILLIGRAM DAILY; STYRKE: 30 MG.
     Route: 048
     Dates: start: 20160615, end: 20160617
  2. LANSOPRAZOL ^ACTAVIS^ [Concomitant]
     Active Substance: LANSOPRAZOLE
     Indication: GASTROOESOPHAGEAL REFLUX DISEASE
     Dates: start: 20070101
  3. METOPROLOL ^GEA^ [Concomitant]
     Active Substance: METOPROLOL
     Indication: EXTRASYSTOLES
  4. QUETIAPINE. [Concomitant]
     Active Substance: QUETIAPINE
     Indication: INITIAL INSOMNIA
     Dates: start: 20160202
  5. SIMVASTATIN ^ACTAVIS^ [Concomitant]
     Active Substance: SIMVASTATIN
     Indication: HYPERCHOLESTEROLAEMIA
     Dates: start: 2011

REACTIONS (3)
  - Suicidal ideation [Recovering/Resolving]
  - Obsessive thoughts [Recovering/Resolving]
  - Violence-related symptom [Recovering/Resolving]

NARRATIVE: CASE EVENT DATE: 20160616
